FAERS Safety Report 16208541 (Version 2)
Quarter: 2019Q3

REPORT INFORMATION
  Report Type: Spontaneous
  Country: ES (occurrence: ES)
  Receive Date: 20190417
  Receipt Date: 20190910
  Transmission Date: 20191004
  Serious: Yes (Other)
  Sender: FDA-Public Use
  Company Number: ES-UCBSA-2019016324

PATIENT
  Age: 50 Year
  Sex: Male

DRUGS (8)
  1. LACOSAMIDE. [Suspect]
     Active Substance: LACOSAMIDE
     Indication: PARTIAL SEIZURES
     Dosage: 100 MG, 2X/DAY (BID)
     Route: 048
  2. VALPROIC ACID. [Concomitant]
     Active Substance: VALPROIC ACID
     Indication: SEIZURE
     Dosage: 1500 MG/DAY
  3. LEVETIRACETAM. [Suspect]
     Active Substance: LEVETIRACETAM
     Indication: PARTIAL SEIZURES
     Dosage: 1 G, (2 INTRAVENOUS LOADING DOSES OF 1 G)
     Route: 042
  4. LACOSAMIDE. [Suspect]
     Active Substance: LACOSAMIDE
     Dosage: 50 MG, 2X/DAY (BID)
  5. LEVETIRACETAM. [Suspect]
     Active Substance: LEVETIRACETAM
     Indication: PARTIAL SEIZURES
  6. PHENYTOIN. [Concomitant]
     Active Substance: PHENYTOIN
     Indication: SEIZURE
     Dosage: LOADING DOSE OF 1 G
     Route: 042
  7. CLOBAZAM. [Concomitant]
     Active Substance: CLOBAZAM
     Indication: SEIZURE
     Dosage: 10 MG, 2X/DAY (BID)
  8. PHENYTOIN. [Concomitant]
     Active Substance: PHENYTOIN
     Dosage: 250 MILLIGRAM, ONCE DAILY (QD)
     Route: 048

REACTIONS (3)
  - Diplopia [Unknown]
  - Drug reaction with eosinophilia and systemic symptoms [Unknown]
  - Seizure [Unknown]

NARRATIVE: CASE EVENT DATE: 201801
